FAERS Safety Report 4329931-8 (Version None)
Quarter: 2004Q1

REPORT INFORMATION
  Report Type: 
  Country: None (occurrence: None)
  Receive Date: 20040329
  Receipt Date: 20031027
  Transmission Date: 20041129
  Serious: Yes (Death)
  Sender: FDA-Public Use
  Company Number: ESP-BUS-149

PATIENT
  Age: 33 Year
  Sex: Male

DRUGS (9)
  1. BUSULFEX [Suspect]
     Indication: CHRONIC MYELOID LEUKAEMIA
     Dosage: 60 MG QID IV
     Route: 042
     Dates: start: 20030515, end: 20030519
  2. CYCLOPHOSPHAMIDE [Concomitant]
  3. PHENYTOIN [Concomitant]
  4. RAMOSETRON [Concomitant]
  5. ANTIBIOTICS [Concomitant]
  6. ANTIFUNGALS [Concomitant]
  7. IMMUNOSUPRESSANTS [Concomitant]
  8. HEPARIN [Concomitant]
  9. GRASIN [Concomitant]

REACTIONS (5)
  - DELAYED ENGRAFTMENT [None]
  - LEUKOPENIA [None]
  - PNEUMONIA [None]
  - SEPSIS [None]
  - THROMBOCYTOPENIA [None]
